FAERS Safety Report 4636189-9 (Version None)
Quarter: 2005Q2

REPORT INFORMATION
  Report Type: 
  Country: None (occurrence: None)
  Receive Date: 20050413
  Receipt Date: 20050413
  Transmission Date: 20051028
  Serious: Yes (Life-Threatening, Hospitalization)
  Sender: FDA-Public Use
  Company Number: None

PATIENT
  Age: 45 Year
  Sex: Female
  Weight: 65.7716 kg

DRUGS (4)
  1. LAMICTAL [Suspect]
     Indication: BIPOLAR DISORDER
     Dosage: UP TO 100 MG/DAY
     Dates: start: 20050226, end: 20050326
  2. RANITIDINE [Concomitant]
  3. ZOLOFT [Concomitant]
  4. ZITHROMAX [Concomitant]

REACTIONS (5)
  - COUGH [None]
  - PAIN [None]
  - PYREXIA [None]
  - RASH [None]
  - RASH PRURITIC [None]
